FAERS Safety Report 22102630 (Version 1)
Quarter: 2023Q1

REPORT INFORMATION
  Report Type: Other
  Country: FR (occurrence: None)
  Receive Date: 20230316
  Receipt Date: 20230316
  Transmission Date: 20230417
  Serious: Yes (Hospitalization, Other)
  Sender: FDA-Public Use
  Company Number: FR-DEXPHARM-20230571

PATIENT
  Age: 65 Year
  Sex: Female

DRUGS (16)
  1. NIVOLUMAB [Suspect]
     Active Substance: NIVOLUMAB
     Indication: Hodgkin^s disease
     Dosage: 5 CYCLES OF NIVOLUMAB 3 MG/KG INFUSION.
  2. DULOXETINE [Suspect]
     Active Substance: DULOXETINE
     Indication: Antidepressant therapy
     Dosage: NA
  3. LANSOPRAZOLE [Suspect]
     Active Substance: LANSOPRAZOLE
     Dosage: NA
  4. TRAMADOL [Suspect]
     Active Substance: TRAMADOL
     Indication: Analgesic therapy
     Dosage: NA
  5. EPLERENONE [Concomitant]
     Active Substance: EPLERENONE
     Dosage: NA
  6. FUROSEMIDE [Concomitant]
     Active Substance: FUROSEMIDE
     Dosage: NA
  7. RAMIPRIL [Concomitant]
     Active Substance: RAMIPRIL
     Dosage: NA
  8. BISOPROLOL [Concomitant]
     Active Substance: BISOPROLOL
     Dosage: NA
  9. ZOPICLONE [Concomitant]
     Active Substance: ZOPICLONE
     Dosage: NA
  10. ALPRAZOLAM [Concomitant]
     Active Substance: ALPRAZOLAM
     Dosage: NA
  11. INSULIN NOS [Concomitant]
     Active Substance: INSULIN NOS
     Dosage: NA
  12. LEVOTHYROXINE SODIUM [Concomitant]
     Active Substance: LEVOTHYROXINE SODIUM
     Dosage: NA
  13. ACETAMINOPHEN [Concomitant]
     Active Substance: ACETAMINOPHEN
     Dosage: NA
  14. CHOLECALCIFEROL [Concomitant]
     Active Substance: CHOLECALCIFEROL
     Dosage: NA
  15. Polyethylene-glycol [Concomitant]
     Dosage: NA
  16. METOPIMAZINE [Concomitant]
     Active Substance: METOPIMAZINE
     Dosage: NA

REACTIONS (3)
  - Pneumonitis [Recovering/Resolving]
  - Cardiomyopathy [Recovering/Resolving]
  - Renal function test abnormal [Recovering/Resolving]
